FAERS Safety Report 13941411 (Version 3)
Quarter: 2018Q2

REPORT INFORMATION
  Report Type: Spontaneous
  Country: US (occurrence: US)
  Receive Date: 20170906
  Receipt Date: 20180516
  Transmission Date: 20180711
  Serious: Yes (Hospitalization, Other)
  Sender: FDA-Public Use
  Company Number: US-BAYER-2017-166929

PATIENT
  Age: 50 Year

DRUGS (12)
  1. LEVAQUIN [Suspect]
     Active Substance: LEVOFLOXACIN
     Indication: RESPIRATORY TRACT INFECTION
     Dosage: 500 MG, UNK
     Dates: start: 20140724, end: 20140801
  2. AVELOX [Suspect]
     Active Substance: MOXIFLOXACIN HYDROCHLORIDE
     Indication: RESPIRATORY TRACT INFECTION
     Dosage: 400 MG, UNK
     Dates: start: 20081028, end: 20081201
  3. AVELOX [Suspect]
     Active Substance: MOXIFLOXACIN HYDROCHLORIDE
     Indication: RESPIRATORY TRACT INFECTION
     Dosage: 400 MG, UNK
     Dates: start: 20090330, end: 20090410
  4. CIPRO [Suspect]
     Active Substance: CIPROFLOXACIN HYDROCHLORIDE
     Indication: RESPIRATORY TRACT INFECTION
     Dosage: 750 MG, UNK
     Dates: start: 20130118, end: 20130218
  5. LEVAQUIN [Suspect]
     Active Substance: LEVOFLOXACIN
     Indication: RESPIRATORY TRACT INFECTION
     Dosage: 500 MG, UNK
     Dates: start: 20140124, end: 20140201
  6. LEVAQUIN [Suspect]
     Active Substance: LEVOFLOXACIN
     Indication: RESPIRATORY TRACT INFECTION
     Dosage: 500 MG, UNK
     Dates: start: 20141119, end: 20141126
  7. AVELOX [Suspect]
     Active Substance: MOXIFLOXACIN HYDROCHLORIDE
     Indication: RESPIRATORY TRACT INFECTION
     Dosage: 400 MG, UNK
     Dates: start: 20071010, end: 20071024
  8. CIPRO [Suspect]
     Active Substance: CIPROFLOXACIN HYDROCHLORIDE
     Indication: RESPIRATORY TRACT INFECTION
     Dosage: 500 MG, UNK
     Dates: start: 20130827, end: 20130910
  9. CIPRO [Suspect]
     Active Substance: CIPROFLOXACIN HYDROCHLORIDE
     Indication: RESPIRATORY TRACT INFECTION
     Dosage: 750 MG, UNK
     Dates: start: 20100820, end: 20100910
  10. LEVAQUIN [Suspect]
     Active Substance: LEVOFLOXACIN
     Indication: RESPIRATORY TRACT INFECTION
     Dosage: 750 MG, UNK
     Dates: start: 20140505, end: 20140520
  11. AVELOX [Suspect]
     Active Substance: MOXIFLOXACIN HYDROCHLORIDE
     Indication: RESPIRATORY TRACT INFECTION
     Dosage: 400 MG, UNK
     Dates: start: 20150802, end: 20150807
  12. LEVAQUIN [Suspect]
     Active Substance: LEVOFLOXACIN
     Indication: RESPIRATORY TRACT INFECTION
     Dosage: UNK MG, UNK
     Dates: start: 20130128, end: 20130208

REACTIONS (10)
  - Hypoaesthesia [None]
  - Paraesthesia [None]
  - Hypoaesthesia [None]
  - Pain in extremity [None]
  - Paraesthesia [None]
  - Paraplegia [None]
  - Muscular weakness [None]
  - Injury [None]
  - Vertigo [None]
  - Neuropathy peripheral [None]

NARRATIVE: CASE EVENT DATE: 2010
